FAERS Safety Report 8429946-4 (Version None)
Quarter: 2012Q2

REPORT INFORMATION
  Report Type: 
  Country: None (occurrence: None)
  Receive Date: 20120612
  Receipt Date: 20120531
  Transmission Date: 20120825
  Serious: No
  Sender: FDA-Public Use
  Company Number: US-ASTRAZENECA-2011SE37225

PATIENT
  Age: 40 Year
  Sex: Male

DRUGS (3)
  1. SEROQUEL XR [Suspect]
     Route: 048
  2. SEROQUEL XR [Suspect]
     Route: 048
  3. SEROQUEL XR [Suspect]
     Route: 048

REACTIONS (4)
  - HEADACHE [None]
  - BIPOLAR DISORDER [None]
  - VOMITING [None]
  - DRUG DOSE OMISSION [None]
